FAERS Safety Report 13503725 (Version 2)
Quarter: 2017Q3

REPORT INFORMATION
  Report Type: Other
  Country: CN (occurrence: CN)
  Receive Date: 20170502
  Receipt Date: 20170718
  Transmission Date: 20171127
  Serious: Yes (Death)
  Sender: FDA-Public Use
  Company Number: CN-ACTELION-A-CH2017-153006

PATIENT
  Age: 4 Year
  Sex: Female

DRUGS (2)
  1. BOSENTAN. [Suspect]
     Active Substance: BOSENTAN
     Indication: PULMONARY ARTERIAL HYPERTENSION
     Route: 048
  2. CAPTOPRIL. [Concomitant]
     Active Substance: CAPTOPRIL

REACTIONS (3)
  - Disease progression [Fatal]
  - Sudden death [Fatal]
  - Pulmonary arterial hypertension [Fatal]
